FAERS Safety Report 15862081 (Version 1)
Quarter: 2019Q1

REPORT INFORMATION
  Report Type: Spontaneous
  Country: FR (occurrence: FR)
  Receive Date: 20190124
  Receipt Date: 20190124
  Transmission Date: 20190417
  Serious: Yes (Hospitalization)
  Sender: FDA-Public Use
  Company Number: FR-SSP-2019SA016340AA

PATIENT
  Age: 84 Year
  Sex: Male
  Weight: 63 kg

DRUGS (13)
  1. LASILIX [Suspect]
     Active Substance: FUROSEMIDE
     Indication: HYPERTENSION
     Dosage: 1 DF, QD
     Route: 048
  2. ATORVASTATIN CALCIUM. [Suspect]
     Active Substance: ATORVASTATIN CALCIUM
     Indication: HYPERCHOLESTEROLAEMIA
     Dosage: 1 DF, QD
     Route: 048
  3. DICLOFENAC SODIUM. [Suspect]
     Active Substance: DICLOFENAC SODIUM
     Indication: OSTEOARTHRITIS
     Dosage: 3 DF, QD
     Route: 003
  4. LAMALINE [ATROPA BELLADONNA EXTRACT;CAFFEINE;PAPAVER SOMNIFERUM TINCTU [Concomitant]
     Dosage: UNK
     Route: 065
  5. ULTIBRO BREEZHALER [Concomitant]
     Active Substance: GLYCOPYRRONIUM\INDACATEROL
     Dosage: UNK
     Route: 065
  6. STILNOX [Suspect]
     Active Substance: ZOLPIDEM TARTRATE
     Indication: PRODUCT USED FOR UNKNOWN INDICATION
     Dosage: 1 DF, QD
     Route: 048
  7. ARIMIDEX [Concomitant]
     Active Substance: ANASTROZOLE
     Dosage: UNK
     Route: 065
  8. TRIATEC (RAMIPRIL) [Suspect]
     Active Substance: RAMIPRIL
     Indication: HYPERTENSION
     Dosage: 1 DF, QD
     Route: 048
  9. OXAZEPAM. [Suspect]
     Active Substance: OXAZEPAM
     Indication: PRODUCT USED FOR UNKNOWN INDICATION
     Dosage: 10 MG, QD
     Route: 048
  10. PANTOPRAZOLE [Concomitant]
     Active Substance: PANTOPRAZOLE
  11. KARDEGIC [Concomitant]
     Active Substance: ASPIRIN DL-LYSINE
     Dosage: UNK
     Route: 065
  12. METFORMIN HYDROCHLORIDE. [Suspect]
     Active Substance: METFORMIN HYDROCHLORIDE
     Indication: DIABETES MELLITUS
     Dosage: 2000 MG, QD
     Route: 048
  13. BRILIQUE [Concomitant]
     Active Substance: TICAGRELOR
     Dosage: UNK
     Route: 065

REACTIONS (2)
  - Hyperkalaemia [Recovered/Resolved]
  - Acute kidney injury [Recovered/Resolved]

NARRATIVE: CASE EVENT DATE: 20180220
